FAERS Safety Report 8053511-4 (Version None)
Quarter: 2012Q1

REPORT INFORMATION
  Report Type: 
  Country: None (occurrence: None)
  Receive Date: 20120118
  Receipt Date: 20120111
  Transmission Date: 20120608
  Serious: Yes (Hospitalization)
  Sender: FDA-Public Use
  Company Number: JP-SANOFI-AVENTIS-2012SA002753

PATIENT
  Age: 76 Year
  Sex: Male

DRUGS (17)
  1. SPIRONOLACTONE [Concomitant]
     Indication: MYOCARDIAL INFARCTION
     Route: 048
  2. MAGNESIUM OXIDE [Concomitant]
     Indication: CONSTIPATION
     Route: 048
  3. ANTIHYPERTENSIVES [Concomitant]
  4. GOSHAJINKIGAN [Concomitant]
     Indication: DYSURIA
     Route: 048
  5. RABEPRAZOLE SODIUM [Concomitant]
     Indication: GASTRITIS
     Route: 048
  6. WARFARIN SODIUM [Suspect]
     Indication: PROSTHETIC VESSEL IMPLANTATION
     Route: 048
     Dates: end: 20110929
  7. ASPIRIN [Suspect]
     Indication: MYOCARDIAL INFARCTION
     Route: 048
     Dates: end: 20110929
  8. MUCOSTA [Concomitant]
     Indication: GASTRITIS
     Route: 048
  9. LASIX [Concomitant]
     Indication: MYOCARDIAL INFARCTION
     Route: 048
  10. LEVOTHYROXINE SODIUM [Concomitant]
     Indication: HYPOTHYROIDISM
     Route: 048
  11. PLAVIX [Suspect]
     Indication: MYOCARDIAL INFARCTION
     Route: 048
     Dates: end: 20110929
  12. METFORMIN HYDROCHLORIDE [Suspect]
     Route: 048
     Dates: end: 20110929
  13. METFORMIN HYDROCHLORIDE [Suspect]
     Indication: TYPE 2 DIABETES MELLITUS
     Route: 048
  14. NOVORAPID [Concomitant]
     Indication: DIABETES MELLITUS
     Route: 058
     Dates: end: 20110929
  15. ZETIA [Concomitant]
     Route: 048
  16. LIVALO [Concomitant]
     Route: 048
  17. CARVEDILOL [Concomitant]
     Indication: MYOCARDIAL INFARCTION
     Route: 048

REACTIONS (5)
  - HAEMATOMA [None]
  - INJECTION SITE HAEMATOMA [None]
  - SUBCUTANEOUS HAEMATOMA [None]
  - COAGULATION FACTOR XIII LEVEL DECREASED [None]
  - HAEMOGLOBIN DECREASED [None]
